FAERS Safety Report 26088347 (Version 1)
Quarter: 2025Q4

REPORT INFORMATION
  Report Type: Report from Study
  Country: GB (occurrence: GB)
  Receive Date: 20251125
  Receipt Date: 20251125
  Transmission Date: 20260118
  Serious: Yes (Hospitalization)
  Sender: ABBVIE
  Company Number: GB-ABBVIE-6563024

PATIENT
  Age: 57 Year
  Sex: Male

DRUGS (2)
  1. CARBIDOPA\LEVODOPA [Suspect]
     Active Substance: CARBIDOPA\LEVODOPA
     Indication: Parkinson^s disease
     Dosage: 20MG/5MG
     Route: 050
     Dates: start: 20230919
  2. CARBIDOPA\LEVODOPA [Suspect]
     Active Substance: CARBIDOPA\LEVODOPA

REACTIONS (3)
  - Device issue [Not Recovered/Not Resolved]
  - Device material issue [Not Recovered/Not Resolved]
  - Device use issue [Not Recovered/Not Resolved]

NARRATIVE: CASE EVENT DATE: 20251118
